FAERS Safety Report 9336408 (Version 1)
Quarter: 2013Q2

REPORT INFORMATION
  Report Type: Spontaneous
  Country: CN (occurrence: CN)
  Receive Date: 20130607
  Receipt Date: 20130607
  Transmission Date: 20140414
  Serious: Yes (Other)
  Sender: FDA-Public Use
  Company Number: CN-JNJFOC-20130602534

PATIENT
  Age: 7 Year
  Sex: Male
  Weight: 20 kg

DRUGS (2)
  1. INFANTS^ TYLENOL [Suspect]
     Indication: HEADACHE
     Dosage: 3ML THRICE A DAY
     Route: 048
     Dates: start: 20120716, end: 20120716
  2. INFANTS^ TYLENOL [Suspect]
     Indication: PYREXIA
     Dosage: 3ML THRICE A DAY
     Route: 048
     Dates: start: 20120716, end: 20120716

REACTIONS (2)
  - Anaphylactoid reaction [Recovering/Resolving]
  - Pyrexia [Recovering/Resolving]
